FAERS Safety Report 8029300-3 (Version None)
Quarter: 2012Q1

REPORT INFORMATION
  Report Type: 
  Country: None (occurrence: None)
  Receive Date: 20120106
  Receipt Date: 20111227
  Transmission Date: 20120608
  Serious: Yes (Hospitalization)
  Sender: FDA-Public Use
  Company Number: JP-AMGEN-JPNCT2011050267

PATIENT
  Age: 64 Year
  Sex: Male
  Weight: 54 kg

DRUGS (27)
  1. PANITUMUMAB [Suspect]
     Dosage: 6 MG/KG, Q2WK
     Route: 041
     Dates: start: 20101130, end: 20101214
  2. LENDORMIN D [Concomitant]
     Route: 048
  3. RIBOFLAVIN TAB [Concomitant]
     Dosage: UNK
     Route: 048
  4. ANTEBATE [Concomitant]
     Dosage: UNK
     Route: 062
  5. CORTICOSTEROIDS [Concomitant]
     Indication: PROPHYLAXIS
     Dosage: UNK
     Route: 065
  6. ZOFRAN [Concomitant]
     Route: 048
  7. PANITUMUMAB [Suspect]
     Dosage: 6 MG/KG, Q2WK
     Route: 041
     Dates: start: 20110201, end: 20110201
  8. PANITUMUMAB [Suspect]
     Dosage: 6 MG/KG, Q2WK
     Route: 041
     Dates: start: 20110301, end: 20110301
  9. PANITUMUMAB [Suspect]
     Dosage: 6 MG/KG, Q2WK
     Route: 041
     Dates: start: 20110405, end: 20110405
  10. FLUOROURACIL [Concomitant]
     Dosage: 3750 MG, UNK
     Route: 041
     Dates: start: 20101130, end: 20110511
  11. OXALIPLATIN [Concomitant]
     Indication: COLORECTAL CANCER
     Route: 041
     Dates: start: 20100921, end: 20101019
  12. LOCOID [Concomitant]
     Dosage: UNK
     Route: 062
  13. PYDOXAL [Concomitant]
     Dosage: UNK
     Route: 048
  14. FLUOROURACIL [Concomitant]
     Dosage: 625 MG, UNK
     Route: 040
     Dates: start: 20101130, end: 20110511
  15. LEVOLEUCOVORIN CALCIUM [Concomitant]
     Indication: COLORECTAL CANCER
     Route: 041
     Dates: start: 20100921, end: 20101019
  16. PANITUMUMAB [Suspect]
     Dosage: 6 MG/KG, Q2WK
     Route: 041
     Dates: start: 20110902
  17. LEVOLEUCOVORIN CALCIUM [Concomitant]
     Dosage: 320 MG, UNK
     Route: 041
     Dates: start: 20101130, end: 20110511
  18. OXALIPLATIN [Concomitant]
     Route: 041
     Dates: start: 20101130, end: 20110511
  19. DECADRON [Concomitant]
     Dosage: UNK
     Route: 048
  20. METHYCOBAL [Concomitant]
     Dosage: UNK
     Route: 048
  21. PANITUMUMAB [Suspect]
     Indication: COLORECTAL CANCER
     Dosage: 6 MG/KG, Q2WK
     Route: 041
     Dates: start: 20100921, end: 20101019
  22. FLUOROURACIL [Concomitant]
     Indication: COLORECTAL CANCER
     Route: 040
     Dates: start: 20100921, end: 20101019
  23. LANSOPRAZOLE [Concomitant]
     Dosage: UNK
     Route: 048
  24. GOSHAJINKIGAN [Concomitant]
     Dosage: UNK
     Route: 048
  25. PANITUMUMAB [Suspect]
     Dosage: 6 MG/KG, Q2WK
     Route: 041
     Dates: start: 20110511, end: 20110511
  26. FLUOROURACIL [Concomitant]
     Route: 041
     Dates: start: 20100921, end: 20101019
  27. AZUNOL [Concomitant]
     Dosage: UNK
     Route: 049

REACTIONS (3)
  - DERMATITIS ACNEIFORM [None]
  - DIABETIC KETOACIDOSIS [None]
  - STOMATITIS [None]
